FAERS Safety Report 5169748-8 (Version None)
Quarter: 2006Q4

REPORT INFORMATION
  Report Type: 
  Country: None (occurrence: None)
  Receive Date: 20061212
  Receipt Date: 20061201
  Transmission Date: 20070319
  Serious: Yes (Other)
  Sender: FDA-Public Use
  Company Number: US-JNJFOC-20061201315

PATIENT
  Sex: Female
  Weight: 68.04 kg

DRUGS (4)
  1. DURAGESIC-100 [Suspect]
     Route: 062
  2. DURAGESIC-100 [Suspect]
     Route: 062
  3. DURAGESIC-100 [Suspect]
     Indication: PAIN
     Route: 062
  4. OMEPRAZOLE [Concomitant]
     Indication: ULCER
     Route: 048

REACTIONS (7)
  - ARTHRITIS [None]
  - BACK PAIN [None]
  - CARDIOMYOPATHY [None]
  - DYSPNOEA [None]
  - NEURALGIA [None]
  - OEDEMA PERIPHERAL [None]
  - PAIN [None]
